FAERS Safety Report 13875555 (Version 1)
Quarter: 2017Q3

REPORT INFORMATION
  Report Type: Spontaneous
  Country: US (occurrence: US)
  Receive Date: 20170817
  Receipt Date: 20170817
  Transmission Date: 20171127
  Serious: No
  Sender: FDA-Public Use
  Company Number: US-BIOGEN-2017BI00446317

PATIENT
  Sex: Male

DRUGS (1)
  1. TECFIDERA [Suspect]
     Active Substance: DIMETHYL FUMARATE
     Indication: MULTIPLE SCLEROSIS
     Route: 065
     Dates: start: 20170720

REACTIONS (7)
  - Asthenia [Unknown]
  - Dry skin [Unknown]
  - Flushing [Unknown]
  - Abdominal pain upper [Unknown]
  - Gait disturbance [Unknown]
  - Nasopharyngitis [Unknown]
  - Vomiting [Unknown]
